FAERS Safety Report 23450210 (Version 1)
Quarter: 2024Q1

REPORT INFORMATION
  Report Type: Spontaneous
  Country: PT (occurrence: PT)
  Receive Date: 20240129
  Receipt Date: 20240129
  Transmission Date: 20240409
  Serious: Yes (Other)
  Sender: FDA-Public Use
  Company Number: PT-HALEON-PTCH2024EME004631

PATIENT

DRUGS (6)
  1. FLUTICASONE PROPIONATE [Suspect]
     Active Substance: FLUTICASONE PROPIONATE
     Indication: Asthma
     Dosage: 92 UG, QD (ID)
  2. COBICISTAT\DARUNAVIR ETHANOLATE [Suspect]
     Active Substance: COBICISTAT\DARUNAVIR ETHANOLATE
     Indication: HIV infection
     Dosage: UNK UNK, QD (800/150 MG ID)
     Dates: start: 2019
  3. COBICISTAT\DARUNAVIR ETHANOLATE [Suspect]
     Active Substance: COBICISTAT\DARUNAVIR ETHANOLATE
     Indication: Hepatitis C
  4. BUDESONIDE [Suspect]
     Active Substance: BUDESONIDE
     Indication: Asthma
     Dosage: 200 UG, QD (ID)
     Route: 055
  5. RALTEGRAVIR [Concomitant]
     Active Substance: RALTEGRAVIR
     Indication: HIV infection
     Dosage: 1200 MG, QD (ID)
  6. RALTEGRAVIR [Concomitant]
     Active Substance: RALTEGRAVIR
     Indication: Hepatitis C

REACTIONS (6)
  - Cushing^s syndrome [Unknown]
  - Muscular weakness [Unknown]
  - Asthenia [Unknown]
  - Weight decreased [Unknown]
  - Hypertension [Unknown]
  - Drug interaction [Unknown]
